FAERS Safety Report 7688288-5 (Version None)
Quarter: 2011Q3

REPORT INFORMATION
  Report Type: 
  Country: None (occurrence: None)
  Receive Date: 20110817
  Receipt Date: 20101229
  Transmission Date: 20111222
  Serious: No
  Sender: FDA-Public Use
  Company Number: US-KINGPHARMUSA00001-K201001557

PATIENT
  Sex: Female
  Weight: 54.422 kg

DRUGS (2)
  1. CYTOMEL [Suspect]
     Indication: THYROID DISORDER
     Dosage: 45 MCG, QD
     Route: 048
     Dates: start: 20101001
  2. CYTOMEL [Suspect]
     Dosage: 50 MCG, QD
     Route: 048
     Dates: start: 20030101

REACTIONS (1)
  - GASTROINTESTINAL TRACT IRRITATION [None]
